FAERS Safety Report 6535260-4 (Version None)
Quarter: 2010Q1

REPORT INFORMATION
  Report Type: 
  Country: None (occurrence: None)
  Receive Date: 20100111
  Receipt Date: 20100111
  Transmission Date: 20100710
  Serious: No
  Sender: FDA-Public Use
  Company Number: None

PATIENT
  Age: 64 Year
  Sex: Female
  Weight: 64.8644 kg

DRUGS (1)
  1. ZICAM COLD REMEDY NASAL GEL ZINCUM GLUCONICUM 2X MATRIXX INITIATIVES, [Suspect]
     Indication: NASOPHARYNGITIS
     Dosage: ONE SPRAY IN EACH NOSTRIL 2 OR 3 TIMES NASAL
     Route: 045
     Dates: start: 20090115, end: 20090116

REACTIONS (6)
  - DRUG INEFFECTIVE [None]
  - EPISTAXIS [None]
  - IMPAIRED HEALING [None]
  - NASAL DISCOMFORT [None]
  - NASAL ULCER [None]
  - RHINALGIA [None]
